FAERS Safety Report 8361607-2 (Version None)
Quarter: 2012Q2

REPORT INFORMATION
  Report Type: 
  Country: None (occurrence: None)
  Receive Date: 20120515
  Receipt Date: 20120507
  Transmission Date: 20120825
  Serious: Yes (Other)
  Sender: FDA-Public Use
  Company Number: US-BAYER-2012-047470

PATIENT

DRUGS (1)
  1. NAPROXEN SODIUM [Suspect]
     Indication: PRODUCT USED FOR UNKNOWN INDICATION
     Route: 048

REACTIONS (5)
  - JOINT RANGE OF MOTION DECREASED [None]
  - UNEVALUABLE EVENT [None]
  - BURNING SENSATION [None]
  - ARTHRALGIA [None]
  - DYSSTASIA [None]
